FAERS Safety Report 4650807-0 (Version None)
Quarter: 2005Q2

REPORT INFORMATION
  Report Type: 
  Country: None (occurrence: None)
  Receive Date: 20050503
  Receipt Date: 20050422
  Transmission Date: 20051028
  Serious: Yes (Hospitalization)
  Sender: FDA-Public Use
  Company Number: FR-GLAXOSMITHKLINE-B0379476A

PATIENT
  Age: 60 Year
  Sex: Female
  Weight: 60 kg

DRUGS (2)
  1. ALKERAN [Suspect]
     Dosage: 12MG PER DAY
     Route: 048
     Dates: start: 20021001, end: 20030801
  2. CORTICOIDS [Concomitant]
     Route: 065
     Dates: start: 20021001, end: 20030801

REACTIONS (1)
  - ACUTE MYELOMONOCYTIC LEUKAEMIA [None]
